FAERS Safety Report 23616533 (Version 1)
Quarter: 2024Q1

REPORT INFORMATION
  Report Type: Spontaneous
  Country: US (occurrence: None)
  Receive Date: 20240308
  Receipt Date: 20240308
  Transmission Date: 20240410
  Serious: Yes (Hospitalization)
  Sender: FDA-Public Use
  Company Number: None

PATIENT
  Age: 60 Year
  Sex: Male
  Weight: 101.25 kg

DRUGS (4)
  1. KRYSTEXXA [Suspect]
     Active Substance: PEGLOTICASE
     Indication: Gout
     Dosage: FREQUENCY : EVERY OTHER WEEK;?
     Route: 042
     Dates: start: 20231027, end: 20240306
  2. Diphenhydramine 25 MG by mouth [Concomitant]
  3. Acetaminophen 1000 MG by mouth [Concomitant]
  4. Solu-Medrol 80 MG IV [Concomitant]

REACTIONS (9)
  - Insomnia [None]
  - Dyspepsia [None]
  - Dyspnoea [None]
  - Dizziness [None]
  - Vertigo [None]
  - Vomiting [None]
  - Haemoptysis [None]
  - Atrial fibrillation [None]
  - Therapy interrupted [None]

NARRATIVE: CASE EVENT DATE: 20240306
